FAERS Safety Report 21837644 (Version 3)
Quarter: 2023Q1

REPORT INFORMATION
  Report Type: Spontaneous
  Country: NO (occurrence: NO)
  Receive Date: 20230109
  Receipt Date: 20230208
  Transmission Date: 20230417
  Serious: Yes (Other)
  Sender: FDA-Public Use
  Company Number: NO-009507513-2301NOR000678

PATIENT
  Sex: Female
  Weight: 95 kg

DRUGS (2)
  1. PEMBROLIZUMAB [Suspect]
     Active Substance: PEMBROLIZUMAB
     Indication: Endometrial cancer
     Dosage: FOR APPROXIMATELY 18 MONTHS
  2. PEMBROLIZUMAB [Suspect]
     Active Substance: PEMBROLIZUMAB
     Dosage: 200 MG, Q3W
     Dates: start: 20210420

REACTIONS (7)
  - Amyotrophic lateral sclerosis [Unknown]
  - Malignant neoplasm progression [Unknown]
  - Conversion disorder [Not Recovered/Not Resolved]
  - Neurological symptom [Unknown]
  - Dysphagia [Unknown]
  - Muscle twitching [Not Recovered/Not Resolved]
  - Hypophysitis [Unknown]

NARRATIVE: CASE EVENT DATE: 20220201
